FAERS Safety Report 9539654 (Version 2)
Quarter: 2013Q4

REPORT INFORMATION
  Report Type: Report from Study
  Country: AR (occurrence: AR)
  Receive Date: 20130920
  Receipt Date: 20131022
  Transmission Date: 20140711
  Serious: Yes (Other)
  Sender: FDA-Public Use
  Company Number: PHHY2013AR104902

PATIENT
  Sex: Male

DRUGS (1)
  1. DIOVAN [Suspect]
     Indication: HYPERTENSION
     Dosage: 1 DF, (160 MG) PER DAY
     Route: 048
     Dates: start: 2013

REACTIONS (5)
  - Prostatic disorder [Unknown]
  - Urinary retention [Unknown]
  - Renal failure [Unknown]
  - Depressed mood [Unknown]
  - Infection [Unknown]
